FAERS Safety Report 14920620 (Version 2)
Quarter: 2018Q2

REPORT INFORMATION
  Report Type: Spontaneous
  Country: US (occurrence: US)
  Receive Date: 20180521
  Receipt Date: 20180627
  Transmission Date: 20180711
  Serious: Yes (Other)
  Sender: FDA-Public Use
  Company Number: US-PURDUE-USA-2018-0143629

PATIENT
  Sex: Male
  Weight: 70.3 kg

DRUGS (1)
  1. MORPHINE SULFATE (SIMILAR TO NDA 19-516) [Suspect]
     Active Substance: MORPHINE SULFATE
     Indication: PRODUCT USED FOR UNKNOWN INDICATION
     Dosage: 30 MG, UNK
     Route: 048
     Dates: start: 2010

REACTIONS (2)
  - Mobility decreased [Not Recovered/Not Resolved]
  - Spinal cord disorder [Not Recovered/Not Resolved]
